FAERS Safety Report 10945916 (Version 3)
Quarter: 2015Q3

REPORT INFORMATION
  Report Type: Spontaneous
  Country: US (occurrence: US)
  Receive Date: 20150323
  Receipt Date: 20150908
  Transmission Date: 20151125
  Serious: Yes (Hospitalization)
  Sender: FDA-Public Use
  Company Number: US-BAYER-2015-045083

PATIENT
  Age: 38 Year
  Sex: Female
  Weight: 86 kg

DRUGS (2)
  1. MIRENA [Suspect]
     Active Substance: LEVONORGESTREL
     Indication: CONTRACEPTION
     Dosage: 20 MCG/24HR, CONT
     Route: 015
     Dates: start: 20080228, end: 20131104
  2. DEPO-PROVERA [Concomitant]
     Active Substance: MEDROXYPROGESTERONE ACETATE
     Dosage: UNK
     Dates: start: 2013

REACTIONS (14)
  - Gastrointestinal disorder [None]
  - Device difficult to use [None]
  - Injury [None]
  - Device use error [None]
  - Uterine perforation [None]
  - Pelvic adhesions [None]
  - Pain [None]
  - Scar [None]
  - Anxiety [None]
  - Emotional distress [None]
  - Depression [None]
  - Device dislocation [None]
  - Weight increased [None]
  - Stress [None]

NARRATIVE: CASE EVENT DATE: 20110721
